FAERS Safety Report 8496230-2 (Version None)
Quarter: 2012Q3

REPORT INFORMATION
  Report Type: 
  Country: None (occurrence: None)
  Receive Date: 20120709
  Receipt Date: 20120702
  Transmission Date: 20120928
  Serious: Yes (Death)
  Sender: FDA-Public Use
  Company Number: US-CELGENEUS-163-21880-12070175

PATIENT
  Sex: Female

DRUGS (10)
  1. ASPIRIN [Concomitant]
     Dosage: 325 MILLIGRAM
     Route: 048
  2. CITALOPRAM HYDROBROMIDE [Concomitant]
     Dosage: 10 MILLIGRAM
     Route: 048
  3. SIMVASTATIN [Concomitant]
     Dosage: 5 MILLIGRAM
     Route: 048
  4. ZELBORAF [Concomitant]
     Route: 065
  5. FISH OIL [Concomitant]
     Dosage: 1360 MILLIGRAM
     Route: 048
  6. ACETAMINOPHEN AND HYDROCODONE BITARTRATE [Concomitant]
     Dosage: 5-325MG
     Route: 048
  7. REVLIMID [Suspect]
     Indication: MULTIPLE MYELOMA
     Dosage: 15 MILLIGRAM
     Route: 048
     Dates: start: 20110119
  8. CELEBREX [Concomitant]
     Dosage: 200 MILLIGRAM
     Route: 048
  9. VITAMIN E [Concomitant]
     Dosage: 400 INTERNATIONAL UNITS MILLIONS
     Route: 048
  10. ZOMETA [Concomitant]
     Dosage: 4MG/5ML
     Route: 048

REACTIONS (1)
  - DEATH [None]
